FAERS Safety Report 17478841 (Version 1)
Quarter: 2020Q1

REPORT INFORMATION
  Report Type: Spontaneous
  Country: ES (occurrence: ES)
  Receive Date: 20200229
  Receipt Date: 20200229
  Transmission Date: 20200409
  Serious: Yes (Hospitalization)
  Sender: FDA-Public Use
  Company Number: NVSC2020ES052294

PATIENT
  Age: 47 Year
  Sex: Female

DRUGS (4)
  1. CLONAZEPAM. [Suspect]
     Active Substance: CLONAZEPAM
     Indication: INTENTIONAL OVERDOSE
     Dosage: 90 MG, 1 TOTAL
     Route: 048
     Dates: start: 20190624, end: 20190624
  2. TOPIRAMATE. [Interacting]
     Active Substance: TOPIRAMATE
     Indication: INTENTIONAL OVERDOSE
     Dosage: 1 G, 1 TOTAL
     Route: 048
     Dates: start: 20190624, end: 20190624
  3. FENELZINA [Interacting]
     Active Substance: PHENELZINE SULFATE
     Indication: INTENTIONAL OVERDOSE
     Dosage: 1.8 G, 1 TOTAL
     Route: 048
     Dates: start: 20190624, end: 20190624
  4. QUETIAPINE. [Interacting]
     Active Substance: QUETIAPINE
     Indication: INTENTIONAL OVERDOSE
     Dosage: 2.7 G, 1 TOTAL
     Route: 048
     Dates: start: 20190624, end: 20190624

REACTIONS (2)
  - Depressed level of consciousness [Recovered/Resolved]
  - Intentional overdose [Recovered/Resolved]

NARRATIVE: CASE EVENT DATE: 20190625
